FAERS Safety Report 20613343 (Version 1)
Quarter: 2022Q1

REPORT INFORMATION
  Report Type: Report from Study
  Country: US (occurrence: US)
  Receive Date: 20220318
  Receipt Date: 20220318
  Transmission Date: 20220424
  Serious: Yes (Other)
  Sender: FDA-Public Use
  Company Number: US-GILEAD-2022-0574198

PATIENT
  Age: 65 Year
  Sex: Female

DRUGS (1)
  1. IDELALISIB [Suspect]
     Active Substance: IDELALISIB
     Indication: Product used for unknown indication
     Dosage: 100 MG ALTERNATING QD AND BID
     Route: 048
     Dates: start: 20220316

REACTIONS (2)
  - Blood immunoglobulin M decreased [Unknown]
  - Diarrhoea [Recovering/Resolving]
